FAERS Safety Report 9107899 (Version 1)
Quarter: 2013Q1

REPORT INFORMATION
  Report Type: Spontaneous
  Country: US (occurrence: US)
  Receive Date: 20130221
  Receipt Date: 20130221
  Transmission Date: 20140127
  Serious: No
  Sender: FDA-Public Use
  Company Number: US-PFIZER INC-2013064853

PATIENT
  Age: 39 Year
  Sex: Female
  Weight: 99.77 kg

DRUGS (6)
  1. ZOLOFT [Suspect]
     Indication: MAJOR DEPRESSION
     Dosage: 200 1X/DAY IN THE MORNING
     Route: 048
  2. KLONOPIN [Concomitant]
     Indication: ANXIETY
     Dosage: 0.5 MG, 2X/DAY ONE IN THE MORNING AND ONE AT NIGHT
  3. KLONOPIN [Concomitant]
     Indication: PANIC ATTACK
     Dosage: 1 MG, 2X/DAY ONE IN THE MORNING AND ONE AT NIGHT
  4. TRAZODONE [Concomitant]
     Indication: SLEEP DISORDER
     Dosage: 25 MG, 1X/DAY AT NIGHT
  5. TRAZODONE [Concomitant]
     Dosage: 150 MG, 1X/DAY AT NIGHT
  6. GEODON [Concomitant]
     Indication: BIPOLAR DISORDER
     Dosage: 60 MG, 1X/DAY AT NIGHT

REACTIONS (3)
  - Emotional disorder [Recovered/Resolved]
  - Headache [Recovered/Resolved]
  - Neuralgia [Recovered/Resolved]
